FAERS Safety Report 11230824 (Version 1)
Quarter: 2015Q2

REPORT INFORMATION
  Report Type: Spontaneous
  Country: ZA (occurrence: None)
  Receive Date: 20150629
  Receipt Date: 20150629
  Transmission Date: 20150821
  Serious: Yes (Other)
  Sender: FDA-Public Use
  Company Number: None

PATIENT
  Age: 26 Year
  Sex: Female
  Weight: 53 kg

DRUGS (3)
  1. IMPLANON [Suspect]
     Active Substance: ETONOGESTREL
     Dates: start: 20141113, end: 20141113
  2. DOXYTET GAVESCON [Concomitant]
  3. DISPRIN [Concomitant]
     Active Substance: ASPIRIN

REACTIONS (4)
  - Vomiting [None]
  - Weight decreased [None]
  - Fatigue [None]
  - Decreased appetite [None]
